FAERS Safety Report 5272746-7 (Version None)
Quarter: 2007Q1

REPORT INFORMATION
  Report Type: 
  Country: None (occurrence: None)
  Receive Date: 20070322
  Receipt Date: 20070319
  Transmission Date: 20070707
  Serious: Yes (Other)
  Sender: FDA-Public Use
  Company Number: US-GLAXOSMITHKLINE-A0643675A

PATIENT
  Age: 71 Year
  Sex: Male

DRUGS (6)
  1. ADVAIR DISKUS 100/50 [Suspect]
     Indication: ASTHMA
     Route: 055
     Dates: start: 19970101
  2. SINGULAIR [Concomitant]
  3. CENTRUM SILVER [Concomitant]
  4. ATACAND HCT [Concomitant]
  5. FINASTERIDE [Concomitant]
  6. UROXATRAL [Concomitant]

REACTIONS (4)
  - BLOOD PRESSURE INCREASED [None]
  - KIDNEY INFECTION [None]
  - NEPHROLITHIASIS [None]
  - PRODUCTIVE COUGH [None]
